FAERS Safety Report 7875638-X (Version None)
Quarter: 2011Q4

REPORT INFORMATION
  Report Type: 
  Country: None (occurrence: None)
  Receive Date: 20111031
  Receipt Date: 20100429
  Transmission Date: 20120403
  Serious: No
  Sender: FDA-Public Use
  Company Number: US-BAYER-201021505NA

PATIENT
  Age: 40 Year
  Sex: Male

DRUGS (6)
  1. ANTIBIOTICS [Suspect]
     Dosage: UNK
     Dates: start: 20100429
  2. AVELOX [Suspect]
     Indication: PNEUMONIA
     Dosage: UNK
     Route: 048
     Dates: start: 20100429
  3. LITHIUM CITRATE [Concomitant]
  4. LORTAB [Concomitant]
  5. SEROQUEL [Concomitant]
  6. KLONOPIN [Concomitant]

REACTIONS (1)
  - RASH [None]
